FAERS Safety Report 6921628-0 (Version None)
Quarter: 2010Q3

REPORT INFORMATION
  Report Type: 
  Country: None (occurrence: None)
  Receive Date: 20100812
  Receipt Date: 20100803
  Transmission Date: 20110219
  Serious: Yes (Hospitalization)
  Sender: FDA-Public Use
  Company Number: GB-MERCK-0909GBR00070

PATIENT
  Age: 36 Year
  Sex: Female

DRUGS (7)
  1. ISENTRESS [Suspect]
     Indication: HIV INFECTION
     Route: 048
     Dates: start: 20081007, end: 20090803
  2. ISENTRESS [Suspect]
     Route: 048
     Dates: start: 20091024
  3. LOPINAVIR AND RITONAVIR [Concomitant]
     Route: 048
     Dates: start: 20081025
  4. LAMIVUDINE [Concomitant]
     Route: 065
     Dates: start: 20060201
  5. FOLIC ACID [Concomitant]
     Route: 065
  6. ENFUVIRTIDE [Concomitant]
     Route: 058
     Dates: start: 20090804, end: 20091024
  7. ENOXAPARIN SODIUM [Concomitant]
     Route: 058

REACTIONS (2)
  - DRUG EXPOSURE DURING PREGNANCY [None]
  - ENCEPHALOPATHY [None]
